FAERS Safety Report 6565236-2 (Version None)
Quarter: 2010Q1

REPORT INFORMATION
  Report Type: 
  Country: None (occurrence: None)
  Receive Date: 20100201
  Receipt Date: 20100120
  Transmission Date: 20100710
  Serious: Yes (Other)
  Sender: FDA-Public Use
  Company Number: PL-ROCHE-666184

PATIENT
  Sex: Male

DRUGS (4)
  1. CELLCEPT [Suspect]
     Indication: GRAFT VERSUS HOST DISEASE
     Dosage: DOSE INCREASED.
     Route: 065
     Dates: start: 20080101
  2. CELLCEPT [Suspect]
     Route: 065
     Dates: start: 20090501
  3. CYCLOSPORINE [Concomitant]
     Dates: start: 20020101, end: 20090501
  4. CORTICOSTEROIDS [Concomitant]
     Dates: start: 20020101

REACTIONS (2)
  - CHLOROMA [None]
  - LYMPH NODE FIBROSIS [None]
